FAERS Safety Report 26115974 (Version 2)
Quarter: 2025Q4

REPORT INFORMATION
  Report Type: Spontaneous
  Country: EU (occurrence: EU)
  Receive Date: 20251203
  Receipt Date: 20251211
  Transmission Date: 20260117
  Serious: Yes (Death, Other)
  Sender: AUROBINDO
  Company Number: EU-AFSSAPS-AN2025001452

PATIENT
  Age: 62 Year
  Sex: Male

DRUGS (3)
  1. CEFTAZIDIME [Suspect]
     Active Substance: CEFTAZIDIME
     Indication: Sepsis
     Dosage: 2 GRAM, CYCLICAL
     Dates: start: 20251018, end: 20251030
  2. VALPROATE SODIUM [Suspect]
     Active Substance: VALPROATE SODIUM
     Indication: Bipolar disorder
     Dosage: 250 MILLIGRAM, ONCE A DAY
     Dates: start: 20251009, end: 20251022
  3. VALPROATE SODIUM [Suspect]
     Active Substance: VALPROATE SODIUM
     Dosage: 250 MILLIGRAM, ONCE A DAY
     Dates: start: 20251023, end: 20251028

REACTIONS (1)
  - Agranulocytosis [Fatal]

NARRATIVE: CASE EVENT DATE: 20251028
